FAERS Safety Report 25992729 (Version 1)
Quarter: 2025Q4

REPORT INFORMATION
  Report Type: Other
  Country: US (occurrence: US)
  Receive Date: 20251103
  Receipt Date: 20251103
  Transmission Date: 20260118
  Serious: Yes (Hospitalization)
  Sender: HLS THERAPEUTICS
  Company Number: US-HLS-202500369

PATIENT
  Age: 53 Year
  Sex: Male

DRUGS (15)
  1. CLOZAPINE [Suspect]
     Active Substance: CLOZAPINE
     Indication: Product used for unknown indication
     Dosage: DAY OF ADMIT: 08  AND DISCONTINUE ON DAY 29
     Route: 065
  2. CLOZAPINE [Suspect]
     Active Substance: CLOZAPINE
     Indication: Product used for unknown indication
     Dosage: DAY OF ADMIT: 01
     Route: 065
  3. CLOZAPINE [Suspect]
     Active Substance: CLOZAPINE
     Indication: Product used for unknown indication
     Dosage: DAY OF ADMIT: 02
     Route: 065
  4. ESCITALOPRAM [Concomitant]
     Active Substance: ESCITALOPRAM OXALATE
     Indication: Product used for unknown indication
     Route: 065
  5. OLANZAPINE [Concomitant]
     Active Substance: OLANZAPINE
     Indication: Product used for unknown indication
     Dosage: DAY OF ADMIT: 26
     Route: 065
  6. HALOPERIDOL DECANOATE [Concomitant]
     Active Substance: HALOPERIDOL DECANOATE
     Indication: Product used for unknown indication
     Dosage: DAY OF ADMIT: 40
     Route: 065
  7. HALOPERIDOL DECANOATE [Concomitant]
     Active Substance: HALOPERIDOL DECANOATE
     Indication: Product used for unknown indication
     Route: 065
     Dates: start: 2011
  8. HALOPERIDOL [Concomitant]
     Active Substance: HALOPERIDOL
     Indication: Product used for unknown indication
     Route: 065
     Dates: start: 2012
  9. HALOPERIDOL [Concomitant]
     Active Substance: HALOPERIDOL
     Indication: Product used for unknown indication
     Dosage: DAY OF ADMIT: 48
     Route: 048
  10. HALOPERIDOL [Concomitant]
     Active Substance: HALOPERIDOL
     Indication: Product used for unknown indication
     Dosage: DAY OF ADMIT: 12
     Route: 048
  11. HALOPERIDOL [Concomitant]
     Active Substance: HALOPERIDOL
     Indication: Product used for unknown indication
     Dosage: DAY OF ADMIT: 2
     Route: 030
  12. PALIPERIDONE PALMITATE [Concomitant]
     Active Substance: PALIPERIDONE PALMITATE
     Indication: Product used for unknown indication
     Dosage: DAY OF ADMIT: 01
     Route: 065
  13. QUETIAPINE [Concomitant]
     Active Substance: QUETIAPINE
     Indication: Product used for unknown indication
     Dosage: DAY OF ADMIT: 30
     Route: 065
  14. QUETIAPINE [Concomitant]
     Active Substance: QUETIAPINE
     Indication: Product used for unknown indication
     Dosage: DAY OF ADMIT: 34 AND STOPPED ON 39
     Route: 065
  15. QUETIAPINE [Concomitant]
     Active Substance: QUETIAPINE
     Indication: Product used for unknown indication
     Dosage: DAY OF ADMIT: 20
     Route: 065

REACTIONS (1)
  - Treatment noncompliance [Unknown]
